FAERS Safety Report 15788399 (Version 2)
Quarter: 2019Q1

REPORT INFORMATION
  Report Type: Report from Study
  Country: None (occurrence: US)
  Receive Date: 20190104
  Receipt Date: 20190203
  Transmission Date: 20190417
  Serious: Yes (Other)
  Sender: FDA-Public Use
  Company Number: US-ABBVIE-18K-163-2601771-00

PATIENT
  Age: 56 Year
  Sex: Male
  Weight: 103.51 kg

DRUGS (1)
  1. HUMIRA [Suspect]
     Active Substance: ADALIMUMAB
     Indication: PSORIASIS
     Route: 058
     Dates: start: 201606, end: 20181214

REACTIONS (4)
  - Salivary duct obstruction [Recovering/Resolving]
  - Inflammation [Unknown]
  - Cyst [Not Recovered/Not Resolved]
  - Salivary gland enlargement [Not Recovered/Not Resolved]

NARRATIVE: CASE EVENT DATE: 201809
